FAERS Safety Report 9825266 (Version 1)
Quarter: 2014Q1

REPORT INFORMATION
  Report Type: Spontaneous
  Country: CA (occurrence: CA)
  Receive Date: 20140117
  Receipt Date: 20140117
  Transmission Date: 20141002
  Serious: Yes (Death, Other)
  Sender: FDA-Public Use
  Company Number: PHHY2014CA004883

PATIENT
  Age: 64 Year
  Sex: Female

DRUGS (9)
  1. CLOZARIL [Suspect]
     Dosage: 450 MG, QD
     Route: 048
  2. ASA [Concomitant]
     Dosage: UNK UKN, UNK
  3. BENZTROPINE [Concomitant]
     Dosage: UNK UKN, UNK
  4. BUPROPION [Concomitant]
     Dosage: UNK UKN, UNK
  5. HALOPERIDOL [Concomitant]
     Dosage: UNK UKN, UNK
  6. METFORMIN [Concomitant]
     Dosage: UNK UKN, UNK
  7. QUETIAPINE [Concomitant]
     Dosage: UNK UKN, UNK
  8. RAMIPRIL [Concomitant]
     Dosage: UNK UKN, UNK
  9. VALPROIC ACID [Concomitant]
     Dosage: UNK UKN, UNK

REACTIONS (8)
  - Death [Fatal]
  - Blood culture positive [Unknown]
  - Septic shock [Unknown]
  - Intestinal ischaemia [Unknown]
  - Abdominal pain [Unknown]
  - Hypotension [Unknown]
  - Diarrhoea [Unknown]
  - Syncope [Unknown]
